FAERS Safety Report 9282909 (Version 1)
Quarter: 2013Q2

REPORT INFORMATION
  Report Type: Spontaneous
  Country: GB (occurrence: None)
  Receive Date: 20130503
  Receipt Date: 20130503
  Transmission Date: 20140414
  Serious: Yes (Life-Threatening, Hospitalization)
  Sender: FDA-Public Use
  Company Number: E2B_00000782

PATIENT
  Age: 89 Year
  Sex: Female
  Weight: 40 kg

DRUGS (9)
  1. LISINOPRIL (LISINOPRIL) [Suspect]
     Indication: PRODUCT USED FOR UNKNOWN INDICATION
     Route: 048
  2. FUROSEMIDE (FUROSEMIDE) [Suspect]
     Indication: PRODUCT USED FOR UNKNOWN INDICATION
     Route: 048
     Dates: start: 20130405
  3. CALCIUM CARBONATE (+) CHOLECALCIFEROL [Suspect]
     Indication: OSTEOPOROSIS
  4. AMOXICILLIN [Concomitant]
  5. SIMVASTATIN (SIMVASTATIN) [Concomitant]
  6. NITROFURANTOIN [Concomitant]
  7. ATENOLOL+CHLORTHALIDONE (CO-TENIDONE) [Concomitant]
  8. LANSOPRAZOLE [Concomitant]
  9. ALENDRONIC ACID [Concomitant]

REACTIONS (3)
  - Renal failure acute [None]
  - Hypercalcaemia [None]
  - Lung disorder [None]
